FAERS Safety Report 6096259-8 (Version None)
Quarter: 2009Q1

REPORT INFORMATION
  Report Type: 
  Country: None (occurrence: None)
  Receive Date: 20090227
  Receipt Date: 20081022
  Transmission Date: 20090719
  Serious: No
  Sender: FDA-Public Use
  Company Number: A0753076A

PATIENT
  Age: 66 Year
  Sex: Female

DRUGS (6)
  1. LAMICTAL [Suspect]
     Indication: MAJOR DEPRESSION
     Dosage: 400MG TWICE PER DAY
     Route: 048
     Dates: start: 19980407
  2. TOPAMAX [Concomitant]
  3. CYMBALTA [Concomitant]
  4. BUSPAR [Concomitant]
  5. WELLBUTRIN SR [Concomitant]
  6. KLONOPIN [Concomitant]

REACTIONS (1)
  - OVERDOSE [None]
